FAERS Safety Report 17268533 (Version 1)
Quarter: 2020Q1

REPORT INFORMATION
  Report Type: Spontaneous
  Country: CH (occurrence: CH)
  Receive Date: 20200114
  Receipt Date: 20200114
  Transmission Date: 20200409
  Serious: Yes (Other)
  Sender: FDA-Public Use
  Company Number: CH-TAKEDA-2020TEU000649

PATIENT
  Sex: Female

DRUGS (1)
  1. DEXILANT [Suspect]
     Active Substance: DEXLANSOPRAZOLE
     Indication: ABDOMINAL DISCOMFORT
     Dosage: 60 MILLIGRAM, BID
     Route: 065
     Dates: start: 2019

REACTIONS (3)
  - Phlebitis [Unknown]
  - Thrombosis [Unknown]
  - Lupus-like syndrome [Unknown]
